FAERS Safety Report 16047905 (Version 2)
Quarter: 2019Q2

REPORT INFORMATION
  Report Type: Spontaneous
  Country: GB (occurrence: GB)
  Receive Date: 20190307
  Receipt Date: 20190409
  Transmission Date: 20190711
  Serious: Yes (Hospitalization, Other)
  Sender: FDA-Public Use
  Company Number: GB-AMNEAL PHARMACEUTICALS-2019AMN00254

PATIENT
  Age: 50 Year
  Sex: Male

DRUGS (4)
  1. EFAVIRENZ, EMITRICITABINE, TENOFOVIR [Concomitant]
     Indication: ANTIRETROVIRAL THERAPY
     Dosage: UNK
  2. AZATHIOPRINE. [Suspect]
     Active Substance: AZATHIOPRINE
     Indication: COLITIS ULCERATIVE
     Dosage: 100 MG, 1X/DAY
     Route: 065
  3. MESALAZINE [Concomitant]
     Active Substance: MESALAMINE
     Indication: COLITIS ULCERATIVE
     Dosage: UNK
  4. CO-AMOXICLAV [Concomitant]
     Active Substance: AMOXICILLIN\CLAVULANATE POTASSIUM
     Indication: URINARY TRACT INFECTION
     Route: 048

REACTIONS (2)
  - Disseminated cytomegaloviral infection [Recovered/Resolved]
  - Haemophagocytic lymphohistiocytosis [Recovered/Resolved]
